FAERS Safety Report 21626239 (Version 1)
Quarter: 2022Q4

REPORT INFORMATION
  Report Type: Spontaneous
  Country: US (occurrence: US)
  Receive Date: 20221122
  Receipt Date: 20221122
  Transmission Date: 20230112
  Serious: Yes (Life-Threatening, Hospitalization, Other)
  Sender: FDA-Public Use
  Company Number: US-BRISTOL-MYERS SQUIBB COMPANY-2022-119294

PATIENT
  Age: 68 Year
  Sex: Male

DRUGS (1)
  1. REVLIMID [Suspect]
     Active Substance: LENALIDOMIDE
     Indication: Plasma cell myeloma
     Dosage: 100/BO: 15MG
     Route: 048
     Dates: start: 20200409, end: 20220917

REACTIONS (11)
  - Fatigue [Unknown]
  - Dyspnoea exertional [Unknown]
  - Muscular weakness [Unknown]
  - Respiratory distress [Unknown]
  - Acute kidney injury [Not Recovered/Not Resolved]
  - Sepsis [Unknown]
  - Hepatic encephalopathy [Not Recovered/Not Resolved]
  - Pancytopenia [Not Recovered/Not Resolved]
  - Cardiac failure congestive [Not Recovered/Not Resolved]
  - Choking [Unknown]
  - Condition aggravated [Not Recovered/Not Resolved]

NARRATIVE: CASE EVENT DATE: 20220908
